FAERS Safety Report 7910469-3 (Version None)
Quarter: 2011Q4

REPORT INFORMATION
  Report Type: 
  Country: None (occurrence: None)
  Receive Date: 20111111
  Receipt Date: 20111101
  Transmission Date: 20120403
  Serious: Yes (Other)
  Sender: FDA-Public Use
  Company Number: PHHY2011BR88285

PATIENT
  Sex: Female
  Weight: 85 kg

DRUGS (1)
  1. EXELON [Suspect]
     Indication: DEMENTIA ALZHEIMER'S TYPE
     Dosage: 4.6 MG, 1 PATCH (9 MG/5 CM^2) EVERY 24 HOURS
     Route: 062
     Dates: start: 20110601

REACTIONS (2)
  - URINARY TRACT INFECTION [None]
  - ANAEMIA [None]
